FAERS Safety Report 8269953-8 (Version None)
Quarter: 2012Q2

REPORT INFORMATION
  Report Type: 
  Country: None (occurrence: None)
  Receive Date: 20120410
  Receipt Date: 20120404
  Transmission Date: 20120825
  Serious: No
  Sender: FDA-Public Use
  Company Number: US-PFIZER INC-2012086261

PATIENT
  Sex: Female
  Weight: 100 kg

DRUGS (11)
  1. METFORMIN [Concomitant]
     Indication: DIABETES MELLITUS
     Dosage: 500 MG, 1X/DAY
  2. ATENOLOL [Concomitant]
     Indication: ATRIAL FIBRILLATION
     Dosage: 25 MG, 2X/DAY
  3. CITALOPRAM [Concomitant]
     Indication: ANXIETY
     Dosage: 40 MG, 1X/DAY
  4. ESTRADIOL [Concomitant]
     Indication: HORMONE LEVEL ABNORMAL
     Dosage: 2 MG, 1X/DAY
  5. FAMOTIDINE [Concomitant]
     Indication: GASTRIC DISORDER
     Dosage: 20 MG, 2X/DAY
  6. BUPROPION HYDROCHLORIDE [Concomitant]
     Dosage: 150 MG, 2X/DAY
  7. GEMFIBROZIL [Concomitant]
     Indication: BLOOD CHOLESTEROL ABNORMAL
     Dosage: 600 MG, 2X/DAY
  8. ACETYLSALICYLIC ACID [Concomitant]
     Dosage: 81 MG, 1X/DAY
  9. CRESTOR [Concomitant]
     Dosage: 5 MG, 1X/DAY
  10. TOPIRAMATE [Concomitant]
     Indication: MIGRAINE PROPHYLAXIS
     Dosage: 10 MG, 1X/DAY
  11. TIKOSYN [Suspect]
     Indication: ATRIAL FIBRILLATION
     Dosage: 500 UG, 2X/DAY
     Route: 048
     Dates: start: 20100101, end: 20120301

REACTIONS (4)
  - TREMOR [None]
  - NERVOUSNESS [None]
  - HEART RATE INCREASED [None]
  - FEELING ABNORMAL [None]
